FAERS Safety Report 9659123 (Version 1)
Quarter: 2013Q4

REPORT INFORMATION
  Report Type: Report from Study
  Country: AR (occurrence: AR)
  Receive Date: 20131031
  Receipt Date: 20131031
  Transmission Date: 20140711
  Serious: Yes (Hospitalization, Other)
  Sender: FDA-Public Use
  Company Number: AR-ROCHE-1295160

PATIENT
  Sex: Male

DRUGS (1)
  1. RANIBIZUMAB [Suspect]
     Indication: EYE OEDEMA
     Route: 050
     Dates: start: 2012, end: 201304

REACTIONS (2)
  - Myocardial infarction [Recovering/Resolving]
  - Visual impairment [Unknown]
